FAERS Safety Report 7984186 (Version 2)
Quarter: 2013Q1

REPORT INFORMATION
  Report Type: Report from Study
  Country: NZ (occurrence: NZ)
  Receive Date: 20110609
  Receipt Date: 20130201
  Transmission Date: 20140127
  Serious: Yes (Death)
  Sender: FDA-Public Use
  Company Number: PHHO2007NZ18586

PATIENT
  Age: 50 Year
  Sex: Male

DRUGS (2)
  1. CLOZARIL [Suspect]
     Indication: SCHIZOPHRENIA
     Dosage: 600 MG,
     Route: 048
     Dates: start: 1990, end: 20070124
  2. CITALOPRAM [Suspect]
     Dosage: 60 MG,
     Route: 048
     Dates: end: 20070124

REACTIONS (3)
  - Cardiomyopathy [Fatal]
  - Ventricular tachycardia [Fatal]
  - Cardiac arrest [Fatal]
